FAERS Safety Report 9502497 (Version 1)
Quarter: 2013Q3

REPORT INFORMATION
  Report Type: Spontaneous
  Country: US (occurrence: US)
  Receive Date: 20130906
  Receipt Date: 20130906
  Transmission Date: 20140515
  Serious: No
  Sender: FDA-Public Use
  Company Number: US-009507513-1309USA001971

PATIENT
  Age: 55 Year
  Sex: Female

DRUGS (5)
  1. JANUMET [Suspect]
     Indication: TYPE 2 DIABETES MELLITUS
     Dosage: UNK UNK, BID
     Route: 048
     Dates: start: 201307
  2. SIMVASTATIN [Concomitant]
  3. LISINOPRIL [Concomitant]
  4. CITALOPRAM [Concomitant]
  5. SYNTHROID [Concomitant]

REACTIONS (2)
  - Local swelling [Not Recovered/Not Resolved]
  - Drug dose omission [Unknown]
